FAERS Safety Report 7964355-3 (Version None)
Quarter: 2011Q4

REPORT INFORMATION
  Report Type: 
  Country: None (occurrence: None)
  Receive Date: 20111208
  Receipt Date: 20111128
  Transmission Date: 20120403
  Serious: Yes (Other)
  Sender: FDA-Public Use
  Company Number: US-BAYER-2011-029305

PATIENT
  Age: 34 Year
  Sex: Female
  Weight: 68 kg

DRUGS (1)
  1. DROSPIRENONE AND ETHINYL ESTRADIOL [Suspect]
     Dosage: UNK
     Dates: start: 20090401, end: 20090601

REACTIONS (3)
  - DEEP VEIN THROMBOSIS [None]
  - PAIN [None]
  - MENTAL DISORDER [None]
